FAERS Safety Report 22615054 (Version 1)
Quarter: 2023Q2

REPORT INFORMATION
  Report Type: Report from Study
  Country: US (occurrence: US)
  Receive Date: 20230619
  Receipt Date: 20230619
  Transmission Date: 20230722
  Serious: Yes (Other)
  Sender: FDA-Public Use
  Company Number: US-002147023-NVSC2023US136293

PATIENT
  Sex: Male

DRUGS (4)
  1. COSENTYX [Suspect]
     Active Substance: SECUKINUMAB
     Indication: Psoriasis
     Dosage: UNK
     Route: 065
  2. COSENTYX [Suspect]
     Active Substance: SECUKINUMAB
     Indication: Psoriatic arthropathy
  3. CLOBETASOL [Suspect]
     Active Substance: CLOBETASOL
     Indication: Psoriasis
     Dosage: UNK
     Route: 065
  4. HYDROCORTISONE [Suspect]
     Active Substance: HYDROCORTISONE
     Indication: Product used for unknown indication
     Dosage: UNK
     Route: 065

REACTIONS (11)
  - Psoriatic arthropathy [Recovering/Resolving]
  - Haemangioma of skin [Unknown]
  - Papule [Unknown]
  - Rash erythematous [Unknown]
  - Nail dystrophy [Recovering/Resolving]
  - Macule [Unknown]
  - Skin lesion [Unknown]
  - Rash pruritic [Unknown]
  - Psoriasis [Unknown]
  - Drug ineffective [Unknown]
  - Treatment failure [Unknown]
